FAERS Safety Report 6981290-8 (Version None)
Quarter: 2010Q3

REPORT INFORMATION
  Report Type: 
  Country: None (occurrence: None)
  Receive Date: 20100909
  Receipt Date: 20100826
  Transmission Date: 20110219
  Serious: Yes (Hospitalization)
  Sender: FDA-Public Use
  Company Number: A-NJ2010-39323

PATIENT
  Age: 85 Year
  Sex: Female

DRUGS (3)
  1. TRACLEER [Suspect]
     Indication: PULMONARY ARTERIAL HYPERTENSION
     Dosage: , ORAL
     Route: 048
     Dates: start: 20100802
  2. TADALAFIL (TADALAFIL) [Concomitant]
  3. LASIX [Concomitant]

REACTIONS (8)
  - ANAEMIA [None]
  - DEHYDRATION [None]
  - FLUID OVERLOAD [None]
  - HUMERUS FRACTURE [None]
  - HYPOXIA [None]
  - PLEURAL EFFUSION [None]
  - PULMONARY OEDEMA [None]
  - SYNCOPE [None]
